FAERS Safety Report 10615815 (Version 1)
Quarter: 2014Q4

REPORT INFORMATION
  Report Type: Spontaneous
  Country: NO (occurrence: NO)
  Receive Date: 20141201
  Receipt Date: 20141201
  Transmission Date: 20150529
  Serious: Yes (Disabling)
  Sender: FDA-Public Use
  Company Number: NO-JNJFOC-20141115236

PATIENT
  Age: 1 Year
  Sex: Male

DRUGS (1)
  1. HALDOL [Suspect]
     Active Substance: HALOPERIDOL
     Indication: RESTLESSNESS
     Route: 065
     Dates: start: 20141016, end: 20141016

REACTIONS (5)
  - Aphasia [Recovering/Resolving]
  - Hallucination [Recovering/Resolving]
  - Cerebral disorder [Unknown]
  - Dyskinesia [Recovering/Resolving]
  - Product use issue [Unknown]

NARRATIVE: CASE EVENT DATE: 20141016
